FAERS Safety Report 6487680-4 (Version None)
Quarter: 2009Q4

REPORT INFORMATION
  Report Type: 
  Country: None (occurrence: None)
  Receive Date: 20091123
  Receipt Date: 20090917
  Transmission Date: 20100525
  Serious: No
  Sender: FDA-Public Use
  Company Number: 8052488

PATIENT
  Age: 50 Year
  Sex: Female
  Weight: 84 kg

DRUGS (7)
  1. CIMZIA [Suspect]
     Dosage: 400 MG SC
     Route: 058
     Dates: start: 20090801
  2. METHOTREXATE [Concomitant]
  3. NAPROXEN [Concomitant]
  4. PREDNISONE [Concomitant]
  5. PAXIL [Concomitant]
  6. TRAZODONE HCL [Concomitant]
  7. AMBIEN [Concomitant]

REACTIONS (2)
  - INJECTION SITE EXTRAVASATION [None]
  - MALABSORPTION FROM INJECTION SITE [None]
